FAERS Safety Report 5597913-4 (Version None)
Quarter: 2007Q4

REPORT INFORMATION
  Report Type: 
  Country: None (occurrence: None)
  Receive Date: 20071221
  Receipt Date: 20061012
  Transmission Date: 20080405
  Serious: No
  Sender: FDA-Public Use
  Company Number: 06H-163-0310791-00

PATIENT
  Age: 44 Year
  Sex: Female

DRUGS (3)
  1. MORPHINE SULFATE [Suspect]
     Indication: PAIN
     Dosage: SEE IMAGE
     Route: 042
     Dates: start: 20060919, end: 20060919
  2. MORPHINE SULFATE [Suspect]
     Indication: PAIN
     Dosage: SEE IMAGE
     Route: 042
     Dates: start: 20060919, end: 20060919
  3. MORPHINE SULFATE [Suspect]
     Indication: PAIN
     Dosage: SEE IMAGE
     Route: 042
     Dates: start: 20060919, end: 20060919

REACTIONS (1)
  - RESPIRATORY DEPRESSION [None]
